FAERS Safety Report 4886321-7 (Version None)
Quarter: 2006Q1

REPORT INFORMATION
  Report Type: 
  Country: None (occurrence: None)
  Receive Date: 20060118
  Receipt Date: 20060105
  Transmission Date: 20060701
  Serious: Yes (Hospitalization, Other)
  Sender: FDA-Public Use
  Company Number: 2006005748

PATIENT
  Sex: Male
  Weight: 83.4619 kg

DRUGS (3)
  1. CELEBREX [Suspect]
     Indication: PAIN
     Dosage: UNK (1 IN 1 D); ORAL
     Route: 048
  2. VICODIN [Suspect]
     Indication: PAIN
     Dosage: 10-660 MILLIGRAM (3-4 TIMES DAILY; PRN), ORAL
     Route: 048
     Dates: start: 20041001
  3. VIOXX [Concomitant]

REACTIONS (5)
  - ANOREXIA [None]
  - ARTERIAL DISORDER [None]
  - NERVE INJURY [None]
  - PAIN IN EXTREMITY [None]
  - WEIGHT DECREASED [None]
